FAERS Safety Report 5133006-8 (Version None)
Quarter: 2006Q4

REPORT INFORMATION
  Report Type: 
  Country: None (occurrence: None)
  Receive Date: 20061017
  Receipt Date: 20061009
  Transmission Date: 20070319
  Serious: Yes (Other)
  Sender: FDA-Public Use
  Company Number: DE-2006-030069

PATIENT
  Sex: Male

DRUGS (1)
  1. MAGNEVIST [Suspect]
     Indication: ANGIOGRAM
     Dosage: 3X ^DOUBLE-DOSAGES^,
     Dates: start: 20060201, end: 20060501

REACTIONS (1)
  - NEPHROGENIC FIBROSING DERMOPATHY [None]
